FAERS Safety Report 17835756 (Version 1)
Quarter: 2020Q2

REPORT INFORMATION
  Report Type: Spontaneous
  Country: US (occurrence: US)
  Receive Date: 20200528
  Receipt Date: 20200528
  Transmission Date: 20200714
  Serious: No
  Sender: FDA-Public Use
  Company Number: US-CARDINAL HEALTH 418, INC.-2084274

PATIENT
  Age: 56 Year
  Sex: Male

DRUGS (1)
  1. SODIUM IODIDE I 123 [Suspect]
     Active Substance: SODIUM IODIDE I-123
     Indication: THYROID FUNCTION TEST
     Route: 048
     Dates: start: 20190910, end: 20190910

REACTIONS (4)
  - Musculoskeletal discomfort [Not Recovered/Not Resolved]
  - Swelling [Recovered/Resolved]
  - Burning sensation [Recovered/Resolved]
  - Chest discomfort [Not Recovered/Not Resolved]

NARRATIVE: CASE EVENT DATE: 20190910
